FAERS Safety Report 8985362 (Version 1)
Quarter: 2012Q4

REPORT INFORMATION
  Report Type: 
  Country: BR (occurrence: BR)
  Receive Date: 20121226
  Receipt Date: 20121226
  Transmission Date: 20130627
  Serious: Yes (Hospitalization)
  Sender: FDA-Public Use
  Company Number: BR-ASTRAZENECA-2012SE94251

PATIENT
  Age: 65 Year
  Sex: Female
  Weight: 19.1 kg

DRUGS (2)
  1. ATACAND [Suspect]
     Indication: HYPERTENSION
     Route: 048
     Dates: end: 201210
  2. ATENOLOL [Suspect]
     Indication: HYPERTENSION
     Dosage: Unknown manufacturer
     Route: 048
     Dates: end: 201211

REACTIONS (3)
  - Hypertension [Recovered/Resolved]
  - Adrenal disorder [Recovered/Resolved]
  - Drug ineffective [Unknown]
